FAERS Safety Report 8806594 (Version 1)
Quarter: 2012Q4

REPORT INFORMATION
  Report Type: Spontaneous
  Country: ES (occurrence: None)
  Receive Date: 20120919
  Receipt Date: 20120919
  Transmission Date: 20130627
  Serious: Yes (Other)
  Sender: FDA-Public Use
  Company Number: 2012AP002947

PATIENT
  Age: 28 Year
  Sex: Male

DRUGS (2)
  1. PAROXETINE [Suspect]
     Indication: PANIC DISORDER WITHOUT AGORAPHOBIA
  2. PAROXETINE [Suspect]
     Indication: PANIC DISORDER WITHOUT AGORAPHOBIA

REACTIONS (3)
  - Lower gastrointestinal haemorrhage [None]
  - Constipation [None]
  - Tremor [None]
